FAERS Safety Report 6478511-7 (Version None)
Quarter: 2009Q4

REPORT INFORMATION
  Report Type: 
  Country: None (occurrence: None)
  Receive Date: 20091207
  Receipt Date: 20091202
  Transmission Date: 20100525
  Serious: Yes (Other)
  Sender: FDA-Public Use
  Company Number: US-WYE-H12480909

PATIENT
  Age: 18 Year
  Sex: Female

DRUGS (5)
  1. RAPAMUNE [Suspect]
     Indication: PROPHYLAXIS AGAINST TRANSPLANT REJECTION
     Dosage: TARGET TROUGH LEVEL OF 3-12 NG/MG
     Route: 048
  2. CYCLOPHOSPHAMIDE [Concomitant]
     Dosage: 60MG/KG/D (TOTAL DOSE 120MG/KG)
     Route: 065
  3. THIOTEPA [Concomitant]
     Dosage: 5MG/KG/D (TOTAL DOSE 10MG/KG)
     Route: 065
  4. TACROLIMUS [Concomitant]
     Dosage: STARTING ON DAY -2 (STARTING DOSE 0.03MG/KG D) TARGET LEVEL 5-10 NG/ML; THEN DOSE TAPERED
     Route: 042
  5. METHOTREXATE [Concomitant]
     Dosage: 5MG/M2 ON DAYS +1, +3 AND +6 AFTER TRANSPLANT
     Route: 042

REACTIONS (4)
  - BK VIRUS INFECTION [None]
  - CYSTITIS [None]
  - RENAL FAILURE [None]
  - THROMBOTIC MICROANGIOPATHY [None]
